FAERS Safety Report 15980965 (Version 4)
Quarter: 2019Q2

REPORT INFORMATION
  Report Type: Report from Study
  Country: CA (occurrence: CA)
  Receive Date: 20190219
  Receipt Date: 20190607
  Transmission Date: 20190711
  Serious: Yes (Hospitalization)
  Sender: FDA-Public Use
  Company Number: CA-JNJFOC-20190213264

PATIENT
  Age: 0 Year
  Sex: Female
  Weight: 1.16 kg

DRUGS (4)
  1. REMICADE [Suspect]
     Active Substance: INFLIXIMAB
     Indication: BEHCET^S SYNDROME
     Dosage: PARENT^S DOSING
     Route: 064
     Dates: start: 20180623
  2. REMICADE [Suspect]
     Active Substance: INFLIXIMAB
     Indication: UVEITIS
     Dosage: PARENT^S DOSING
     Route: 064
  3. REMICADE [Suspect]
     Active Substance: INFLIXIMAB
     Indication: UVEITIS
     Dosage: PARENT^S DOSING
     Route: 064
     Dates: start: 20180623
  4. REMICADE [Suspect]
     Active Substance: INFLIXIMAB
     Indication: BEHCET^S SYNDROME
     Dosage: PARENT^S DOSING
     Route: 064

REACTIONS (4)
  - Cerebral haemorrhage [Recovered/Resolved]
  - Foetal exposure during pregnancy [Recovered/Resolved]
  - Premature baby [Not Recovered/Not Resolved]
  - Blood bilirubin increased [Recovered/Resolved]

NARRATIVE: CASE EVENT DATE: 2019
